FAERS Safety Report 5168582-2 (Version None)
Quarter: 2006Q4

REPORT INFORMATION
  Report Type: 
  Country: None (occurrence: None)
  Receive Date: 20061209
  Receipt Date: 20060928
  Transmission Date: 20070319
  Serious: Yes (Death)
  Sender: FDA-Public Use
  Company Number: ES-ABBOTT-06P-144-0345192-01

PATIENT
  Sex: Male
  Weight: 105 kg

DRUGS (3)
  1. HUMIRA [Suspect]
     Indication: PSORIASIS
     Route: 058
     Dates: start: 20060321, end: 20060517
  2. ENALAPRIL MALEATE [Concomitant]
     Indication: HYPERTENSION
  3. INDAPAMIDE [Concomitant]
     Indication: HYPERTENSION

REACTIONS (22)
  - ANAEMIA [None]
  - AORTIC ARTERIOSCLEROSIS [None]
  - BUNDLE BRANCH BLOCK LEFT [None]
  - CARDIAC FAILURE [None]
  - DEATH [None]
  - INFLAMMATION [None]
  - LYMPHADENOPATHY [None]
  - MESENTERIC ARTERIOSCLEROSIS [None]
  - METASTATIC MALIGNANT MELANOMA [None]
  - PERICARDIAL EFFUSION [None]
  - PLEURAL EFFUSION [None]
  - PROSTATIC SPECIFIC ANTIGEN INCREASED [None]
  - PULMONARY HYPERTENSION [None]
  - PULMONARY TUBERCULOSIS [None]
  - RENAL ARTERY ARTERIOSCLEROSIS [None]
  - RENAL FAILURE [None]
  - RESPIRATORY FAILURE [None]
  - SERUM FERRITIN INCREASED [None]
  - TRICUSPID VALVE INCOMPETENCE [None]
  - VENTRICULAR DYSKINESIA [None]
  - VENTRICULAR HYPERTROPHY [None]
  - WEIGHT DECREASED [None]
